FAERS Safety Report 22258948 (Version 1)
Quarter: 2023Q2

REPORT INFORMATION
  Report Type: Report from Study
  Country: US (occurrence: US)
  Receive Date: 20230427
  Receipt Date: 20230427
  Transmission Date: 20230722
  Serious: Yes (Hospitalization)
  Sender: FDA-Public Use
  Company Number: US-002147023-NVSC2023US093387

PATIENT
  Sex: Female

DRUGS (1)
  1. PIQRAY [Suspect]
     Active Substance: ALPELISIB
     Indication: Product used for unknown indication
     Dosage: UNK
     Route: 048

REACTIONS (7)
  - Kidney infection [Unknown]
  - Haematoma [Unknown]
  - Blood glucose increased [Unknown]
  - Nervousness [Unknown]
  - Retching [Unknown]
  - Dysstasia [Unknown]
  - Diarrhoea [Unknown]
